FAERS Safety Report 7737026-6 (Version None)
Quarter: 2011Q3

REPORT INFORMATION
  Report Type: 
  Country: None (occurrence: None)
  Receive Date: 20110908
  Receipt Date: 20110826
  Transmission Date: 20111222
  Serious: Yes (Hospitalization)
  Sender: FDA-Public Use
  Company Number: US-ELI_LILLY_AND_COMPANY-US201104007712

PATIENT
  Sex: Female

DRUGS (6)
  1. CALCIUM CARBONATE [Concomitant]
     Route: 065
  2. VITAMIN D [Concomitant]
     Route: 065
  3. FORTEO [Suspect]
     Dosage: 20 UG, QD
  4. LEVOTHYROXINE SODIUM [Concomitant]
     Route: 065
  5. MULTI-VITAMIN [Concomitant]
  6. FORTEO [Suspect]
     Indication: OSTEOPOROSIS
     Dosage: 20 UG, QD
     Route: 065
     Dates: start: 20110415

REACTIONS (8)
  - FAECES DISCOLOURED [None]
  - NAUSEA [None]
  - HELICOBACTER INFECTION [None]
  - HAEMATOCHEZIA [None]
  - MELAENA [None]
  - HAEMOGLOBIN DECREASED [None]
  - GASTRIC ULCER HAEMORRHAGE [None]
  - VITAMIN D ABNORMAL [None]
